FAERS Safety Report 11914670 (Version 2)
Quarter: 2016Q1

REPORT INFORMATION
  Report Type: Spontaneous
  Country: US (occurrence: US)
  Receive Date: 20160113
  Receipt Date: 20160210
  Transmission Date: 20160526
  Serious: Yes (Other)
  Sender: FDA-Public Use
  Company Number: US-BAYER-2016-005680

PATIENT
  Age: 39 Year
  Sex: Female
  Weight: 63.95 kg

DRUGS (1)
  1. MIRENA [Suspect]
     Active Substance: LEVONORGESTREL
     Indication: CONTRACEPTION
     Dosage: 20 MCG/24HR, CONT
     Route: 015
     Dates: start: 20150206, end: 20160125

REACTIONS (4)
  - Device issue [Recovering/Resolving]
  - Abdominal pain lower [Recovering/Resolving]
  - Uterine perforation [Recovering/Resolving]
  - Pain [None]

NARRATIVE: CASE EVENT DATE: 201511
